FAERS Safety Report 20154122 (Version 3)
Quarter: 2022Q1

REPORT INFORMATION
  Report Type: Report from Study
  Country: DE (occurrence: DE)
  Receive Date: 20211207
  Receipt Date: 20220325
  Transmission Date: 20220423
  Serious: Yes (Hospitalization, Other)
  Sender: FDA-Public Use
  Company Number: DE-ABBVIE-21K-062-4187638-00

PATIENT
  Sex: Female

DRUGS (1)
  1. RINVOQ [Suspect]
     Active Substance: UPADACITINIB
     Indication: Rheumatoid arthritis
     Route: 048
     Dates: start: 20201117, end: 202111

REACTIONS (10)
  - Abdominal wall neoplasm malignant [Not Recovered/Not Resolved]
  - Pulmonary embolism [Unknown]
  - Myocardial infarction [Unknown]
  - Lung neoplasm malignant [Not Recovered/Not Resolved]
  - Lung disorder [Not Recovered/Not Resolved]
  - Dysphonia [Recovering/Resolving]
  - Dizziness [Recovered/Resolved]
  - Tinnitus [Recovered/Resolved]
  - Fall [Unknown]
  - Scar [Not Recovered/Not Resolved]

NARRATIVE: CASE EVENT DATE: 20210101
